FAERS Safety Report 20237140 (Version 1)
Quarter: 2021Q4

REPORT INFORMATION
  Report Type: Spontaneous
  Country: US (occurrence: None)
  Receive Date: 20211227
  Receipt Date: 20211227
  Transmission Date: 20220304
  Serious: Yes (Hospitalization)
  Sender: FDA-Public Use
  Company Number: None

PATIENT
  Age: 67 Year
  Sex: Female
  Weight: 67.5 kg

DRUGS (3)
  1. PRIVIGEN [Suspect]
     Active Substance: HUMAN IMMUNOGLOBULIN G
     Indication: Myasthenia gravis
     Dosage: OTHER FREQUENCY : 4 WEEKS;?
     Route: 041
     Dates: start: 20211227, end: 20211227
  2. PRIVIGEN [Suspect]
     Active Substance: HUMAN IMMUNOGLOBULIN G
     Indication: Myasthenia gravis
     Dosage: OTHER FREQUENCY : 4 WEEKS;?
     Route: 041
     Dates: start: 20211227, end: 20211227
  3. PRIVIGEN [Concomitant]
     Active Substance: HUMAN IMMUNOGLOBULIN G
     Dates: start: 20211227, end: 20211227

REACTIONS (4)
  - Rash [None]
  - Pruritus [None]
  - Urticaria [None]
  - Rhonchi [None]

NARRATIVE: CASE EVENT DATE: 20211227
